FAERS Safety Report 9877896 (Version 5)
Quarter: 2015Q2

REPORT INFORMATION
  Report Type: Spontaneous
  Country: US (occurrence: US)
  Receive Date: 20140206
  Receipt Date: 20150508
  Transmission Date: 20150821
  Serious: Yes (Hospitalization)
  Sender: FDA-Public Use
  Company Number: US-BAYER-2014-019097

PATIENT
  Age: 27 Year
  Sex: Female
  Weight: 86.17 kg

DRUGS (9)
  1. FLAGYL [Concomitant]
     Active Substance: METRONIDAZOLE\METRONIDAZOLE HYDROCHLORIDE
  2. LORTAB [Concomitant]
     Active Substance: ACETAMINOPHEN\HYDROCODONE BITARTRATE
  3. ADVIL [Concomitant]
     Active Substance: IBUPROFEN
  4. DOXYCYCLINE. [Concomitant]
     Active Substance: DOXYCYCLINE
  5. LEVOXYL [Concomitant]
     Active Substance: LEVOTHYROXINE SODIUM
  6. MORTIN [Concomitant]
  7. MIRENA [Suspect]
     Active Substance: LEVONORGESTREL
     Indication: CONTRACEPTION
     Dosage: 20 MCG/24HR, CONT
     Route: 015
     Dates: start: 200608, end: 20130812
  8. PHENERGAN [Concomitant]
     Active Substance: PROMETHAZINE HYDROCHLORIDE
  9. TOPAMAX [Concomitant]
     Active Substance: TOPIRAMATE

REACTIONS (13)
  - Uterine perforation [None]
  - Injury [None]
  - Device difficult to use [None]
  - Abdominal pain [None]
  - Device dislocation [None]
  - Device issue [None]
  - Anxiety [None]
  - Device misuse [None]
  - Depression [None]
  - Drug ineffective [None]
  - Emotional distress [None]
  - Menorrhagia [None]
  - Pregnancy with contraceptive device [None]

NARRATIVE: CASE EVENT DATE: 200704
